FAERS Safety Report 22386841 (Version 1)
Quarter: 2023Q2

REPORT INFORMATION
  Report Type: Spontaneous
  Country: US (occurrence: US)
  Receive Date: 20230531
  Receipt Date: 20230531
  Transmission Date: 20230722
  Serious: No
  Sender: FDA-Public Use
  Company Number: US-AMGEN-USASL2023090647

PATIENT
  Age: 37 Year
  Sex: Female

DRUGS (31)
  1. AIMOVIG [Suspect]
     Active Substance: ERENUMAB-AOOE
     Indication: Eczema
     Dosage: UNK
     Route: 058
  2. AIMOVIG [Suspect]
     Active Substance: ERENUMAB-AOOE
     Indication: Dermatitis atopic
  3. AIMOVIG [Suspect]
     Active Substance: ERENUMAB-AOOE
     Indication: Off label use
  4. FLUTICASONE PROPIONATE [Concomitant]
     Active Substance: FLUTICASONE PROPIONATE
     Indication: Eczema
  5. FLUTICASONE PROPIONATE [Concomitant]
     Active Substance: FLUTICASONE PROPIONATE
     Indication: Dermatitis atopic
  6. AZELASTINE [Concomitant]
     Active Substance: AZELASTINE
     Indication: Eczema
  7. AZELASTINE [Concomitant]
     Active Substance: AZELASTINE
     Indication: Dermatitis atopic
  8. LEVOCETIRIZINE [Concomitant]
     Active Substance: LEVOCETIRIZINE
     Indication: Eczema
  9. LEVOCETIRIZINE [Concomitant]
     Active Substance: LEVOCETIRIZINE
     Indication: Dermatitis atopic
  10. MONTELUKAST [Concomitant]
     Active Substance: MONTELUKAST SODIUM
     Indication: Eczema
  11. MONTELUKAST [Concomitant]
     Active Substance: MONTELUKAST SODIUM
     Indication: Dermatitis atopic
  12. PREDNISONE [Concomitant]
     Active Substance: PREDNISONE
     Indication: Eczema
     Dosage: 10 MILLIGRAM
  13. PREDNISONE [Concomitant]
     Active Substance: PREDNISONE
     Indication: Dermatitis atopic
  14. SERTRALINE [Concomitant]
     Active Substance: SERTRALINE HYDROCHLORIDE
     Indication: Eczema
  15. SERTRALINE [Concomitant]
     Active Substance: SERTRALINE HYDROCHLORIDE
     Indication: Dermatitis atopic
  16. SUMATRIPTAN [Concomitant]
     Active Substance: SUMATRIPTAN
     Indication: Eczema
  17. SUMATRIPTAN [Concomitant]
     Active Substance: SUMATRIPTAN
     Indication: Dermatitis atopic
  18. BETAMETHASONE DIPROPIONATE [Concomitant]
     Active Substance: BETAMETHASONE DIPROPIONATE
     Indication: Eczema
  19. BETAMETHASONE DIPROPIONATE [Concomitant]
     Active Substance: BETAMETHASONE DIPROPIONATE
     Indication: Dermatitis atopic
  20. CLOBETASOL LA SANTE [Concomitant]
     Indication: Eczema
     Dosage: UNK
  21. CLOBETASOL LA SANTE [Concomitant]
     Indication: Dermatitis atopic
  22. FLUCONAZOLE [Concomitant]
     Active Substance: FLUCONAZOLE
     Indication: Eczema
     Dosage: UNK
  23. FLUCONAZOLE [Concomitant]
     Active Substance: FLUCONAZOLE
     Indication: Dermatitis atopic
  24. FLUTICASONE [Concomitant]
     Active Substance: FLUTICASONE
     Indication: Eczema
  25. FLUTICASONE [Concomitant]
     Active Substance: FLUTICASONE
     Indication: Dermatitis atopic
  26. ELIDEL [Concomitant]
     Active Substance: PIMECROLIMUS
     Indication: Eczema
  27. ELIDEL [Concomitant]
     Active Substance: PIMECROLIMUS
     Indication: Dermatitis atopic
  28. HYDROCORTISONE [Concomitant]
     Active Substance: HYDROCORTISONE
     Indication: Eczema
     Dosage: UNK PERCENT
  29. HYDROCORTISONE [Concomitant]
     Active Substance: HYDROCORTISONE
     Indication: Dermatitis atopic
  30. DUPIXENT [Concomitant]
     Active Substance: DUPILUMAB
     Dosage: UNK
  31. OPZELURA [Concomitant]
     Active Substance: RUXOLITINIB PHOSPHATE

REACTIONS (2)
  - Maternal exposure during pregnancy [Unknown]
  - Off label use [Unknown]

NARRATIVE: CASE EVENT DATE: 20220101
